FAERS Safety Report 5398690-2 (Version None)
Quarter: 2007Q3

REPORT INFORMATION
  Report Type: 
  Country: None (occurrence: None)
  Receive Date: 20070725
  Receipt Date: 20070718
  Transmission Date: 20080115
  Serious: Yes (Hospitalization)
  Sender: FDA-Public Use
  Company Number: 2007SP000657

PATIENT
  Age: 43 Year
  Sex: Female
  Weight: 84.369 kg

DRUGS (7)
  1. PEG-INTRON [Suspect]
     Indication: HEPATITIS C
     Dosage: 0.48 ML; QW; SC
     Route: 058
     Dates: start: 20060203, end: 20070104
  2. REBETOL [Suspect]
     Indication: HEPATITIS C
     Dosage: 1200 MG; QD; PO
     Route: 048
     Dates: start: 20060203, end: 20070104
  3. SEPTRA [Suspect]
     Indication: ABSCESS
     Dates: start: 20070109, end: 20070128
  4. SEPTRA [Suspect]
     Indication: CELLULITIS
     Dates: start: 20070109, end: 20070128
  5. EFFEXOR [Concomitant]
  6. PREVACID [Concomitant]
  7. PHENERGAN HCL [Concomitant]

REACTIONS (4)
  - ABSCESS [None]
  - CELLULITIS [None]
  - FEBRILE NEUTROPENIA [None]
  - INCISION SITE PAIN [None]
